FAERS Safety Report 7011625-1 (Version None)
Quarter: 2010Q3

REPORT INFORMATION
  Report Type: 
  Country: None (occurrence: None)
  Receive Date: 20100923
  Receipt Date: 20090225
  Transmission Date: 20110219
  Serious: Yes (Other)
  Sender: FDA-Public Use
  Company Number: US-WYE-H08371009

PATIENT
  Sex: Female

DRUGS (4)
  1. PREMARIN [Suspect]
  2. DEPO-PROVERA [Suspect]
  3. ESTINYL [Suspect]
  4. PROVERA [Suspect]

REACTIONS (2)
  - DEPRESSION [None]
  - ENDOMETRIAL CANCER [None]
